FAERS Safety Report 8398865-4 (Version None)
Quarter: 2012Q1

REPORT INFORMATION
  Report Type: 
  Country: None (occurrence: None)
  Receive Date: 20120323
  Receipt Date: 20111121
  Transmission Date: 20120608
  Serious: Yes (Other)
  Sender: FDA-Public Use
  Company Number: 163-21880-11113210

PATIENT
  Sex: Male
  Weight: 61.2356 kg

DRUGS (3)
  1. REVLIMID [Suspect]
     Indication: MYELODYSPLASTIC SYNDROME
     Dosage: 5 MG, 1 IN 1 D, PO ; 10 MG, 1 IN 1 D, PO ; 5 MG, DAILY FOR 21 DAYS, PO
     Route: 048
     Dates: start: 20060101
  2. REVLIMID [Suspect]
     Indication: MYELODYSPLASTIC SYNDROME
     Dosage: 5 MG, 1 IN 1 D, PO ; 10 MG, 1 IN 1 D, PO ; 5 MG, DAILY FOR 21 DAYS, PO
     Route: 048
     Dates: start: 20081201
  3. REVLIMID [Suspect]
     Indication: MYELODYSPLASTIC SYNDROME
     Dosage: 5 MG, 1 IN 1 D, PO ; 10 MG, 1 IN 1 D, PO ; 5 MG, DAILY FOR 21 DAYS, PO
     Route: 048
     Dates: start: 20090301

REACTIONS (4)
  - ERUCTATION [None]
  - DYSPEPSIA [None]
  - WEIGHT DECREASED [None]
  - DIARRHOEA [None]
